FAERS Safety Report 17056827 (Version 1)
Quarter: 2019Q4

REPORT INFORMATION
  Report Type: Spontaneous
  Country: US (occurrence: US)
  Receive Date: 20191121
  Receipt Date: 20191121
  Transmission Date: 20200122
  Serious: Yes (Other)
  Sender: FDA-Public Use
  Company Number: US-MALLINCKRODT-T201907670

PATIENT
  Age: 59 Year
  Sex: Male

DRUGS (1)
  1. FENTANYL CITRATE. [Suspect]
     Active Substance: FENTANYL CITRATE
     Indication: BACK PAIN
     Dosage: UNK
     Route: 065

REACTIONS (4)
  - Parvimonas micra infection [Unknown]
  - Device failure [Unknown]
  - Dental caries [Unknown]
  - Intervertebral disc degeneration [Unknown]
